FAERS Safety Report 5875307-1 (Version None)
Quarter: 2008Q3

REPORT INFORMATION
  Report Type: 
  Country: None (occurrence: None)
  Receive Date: 20080909
  Receipt Date: 20080903
  Transmission Date: 20090109
  Serious: Yes (Hospitalization)
  Sender: FDA-Public Use
  Company Number: US-MERCK-0806USA08658

PATIENT
  Sex: Female

DRUGS (2)
  1. JANUVIA [Suspect]
     Indication: DIABETES MELLITUS
     Route: 048
     Dates: start: 20080527
  2. INSULIN [Concomitant]
     Route: 065

REACTIONS (5)
  - EXFOLIATIVE RASH [None]
  - KLEBSIELLA BACTERAEMIA [None]
  - PAIN [None]
  - RASH ERYTHEMATOUS [None]
  - SUPERINFECTION [None]
